FAERS Safety Report 7898010-5 (Version None)
Quarter: 2011Q4

REPORT INFORMATION
  Report Type: 
  Country: None (occurrence: None)
  Receive Date: 20111107
  Receipt Date: 20111107
  Transmission Date: 20120403
  Serious: Yes (Other)
  Sender: FDA-Public Use
  Company Number: None

PATIENT
  Sex: Male
  Weight: 45.3 kg

DRUGS (2)
  1. CHLORPROMAZINE [Suspect]
     Indication: HICCUPS
     Dosage: 25 MG
     Route: 048
  2. CHLORPROMAZINE [Suspect]
     Indication: NAUSEA
     Dosage: 25 MG
     Route: 048

REACTIONS (2)
  - DYSTONIA [None]
  - TREMOR [None]
